FAERS Safety Report 6999747-2 (Version None)
Quarter: 2010Q3

REPORT INFORMATION
  Report Type: 
  Country: None (occurrence: None)
  Receive Date: 20100920
  Receipt Date: 20100427
  Transmission Date: 20110219
  Serious: No
  Sender: FDA-Public Use
  Company Number: US-ASTRAZENECA-2010SE18894

PATIENT
  Age: 50 Year
  Sex: Male
  Weight: 97.5 kg

DRUGS (3)
  1. SEROQUEL XR [Suspect]
     Indication: DEPRESSION
     Route: 048
     Dates: start: 20100423, end: 20100425
  2. CIPRO [Concomitant]
     Indication: INFECTION
  3. VESICARE [Concomitant]
     Indication: DYSURIA

REACTIONS (3)
  - ASTHENIA [None]
  - FATIGUE [None]
  - FEELING ABNORMAL [None]
